FAERS Safety Report 9829794 (Version 2)
Quarter: 2014Q1

REPORT INFORMATION
  Report Type: Report from Study
  Country: NL (occurrence: NL)
  Receive Date: 20140120
  Receipt Date: 20140207
  Transmission Date: 20141002
  Serious: Yes (Hospitalization)
  Sender: FDA-Public Use
  Company Number: NL-ROCHE-1330258

PATIENT
  Age: 59 Year
  Sex: Male

DRUGS (4)
  1. RITUXIMAB [Suspect]
     Indication: CHRONIC GRAFT VERSUS HOST DISEASE
     Route: 042
     Dates: start: 20131216, end: 20131223
  2. VALACICLOVIR [Concomitant]
     Indication: PROPHYLAXIS
     Route: 048
  3. PREDNISOLONE [Concomitant]
     Indication: IMMUNOSUPPRESSION
     Route: 048
  4. PREGABALIN [Concomitant]
     Indication: NEUROPATHY PERIPHERAL
     Route: 048

REACTIONS (1)
  - Guillain-Barre syndrome [Unknown]
